FAERS Safety Report 24083751 (Version 1)
Quarter: 2024Q3

REPORT INFORMATION
  Report Type: Report from Study
  Country: CA (occurrence: CA)
  Receive Date: 20240712
  Receipt Date: 20240712
  Transmission Date: 20241016
  Serious: No
  Sender: ROCHE
  Company Number: CA-ROCHE-2845146

PATIENT
  Sex: Female

DRUGS (4)
  1. OCREVUS [Suspect]
     Active Substance: OCRELIZUMAB
     Indication: Relapsing-remitting multiple sclerosis
     Dosage: 300 MG AT DAY 0 AND 14, THEN 600 MG EVERY 6 MONTHS
     Route: 042
     Dates: start: 20190327
  2. OMEGA 3 [Concomitant]
     Active Substance: CAPSAICIN
  3. CALCIUM [Concomitant]
     Active Substance: CALCIUM
  4. CEFIXIME [Concomitant]
     Active Substance: CEFIXIME

REACTIONS (4)
  - Swelling face [Recovered/Resolved]
  - Lip swelling [Recovered/Resolved]
  - Periorbital swelling [Recovered/Resolved]
  - COVID-19 [Unknown]
